FAERS Safety Report 4413640-0 (Version None)
Quarter: 2004Q3

REPORT INFORMATION
  Report Type: 
  Country: None (occurrence: None)
  Receive Date: 20040802
  Receipt Date: 20040722
  Transmission Date: 20050211
  Serious: Yes (Hospitalization)
  Sender: FDA-Public Use
  Company Number: BR-MERCK-0407BRA00073

PATIENT
  Age: 73 Year
  Sex: Male

DRUGS (3)
  1. CAPTOPRIL [Concomitant]
     Route: 048
  2. CIPROFLOXACIN [Concomitant]
     Route: 048
     Dates: start: 20040101, end: 20040505
  3. VIOXX [Suspect]
     Indication: BURSITIS
     Route: 048
     Dates: start: 20040630, end: 20040721

REACTIONS (3)
  - CHEST PAIN [None]
  - COUGH [None]
  - OEDEMA [None]
